FAERS Safety Report 9003643 (Version 3)
Quarter: 2013Q4

REPORT INFORMATION
  Report Type: Spontaneous
  Country: GB (occurrence: GB)
  Receive Date: 20130108
  Receipt Date: 20131018
  Transmission Date: 20140711
  Serious: Yes (Hospitalization)
  Sender: FDA-Public Use
  Company Number: GB-WATSON-2012-23356

PATIENT
  Age: 79 Year
  Sex: Male

DRUGS (20)
  1. IBUPROFEN (UNKNOWN) [Suspect]
     Indication: PRODUCT USED FOR UNKNOWN INDICATION
     Dosage: 400 MG, TID
     Route: 065
     Dates: start: 2001, end: 20040311
  2. ATORVASTATIN (UNKNOWN) [Suspect]
     Indication: HYPERCHOLESTEROLAEMIA
     Dosage: 40 MG, DAILY
     Route: 048
     Dates: start: 200311, end: 20040311
  3. AVANDIA [Suspect]
     Indication: TYPE 2 DIABETES MELLITUS
     Dosage: 8 MG, DAILY
     Route: 048
     Dates: start: 200210, end: 20040316
  4. LEVOTHYROXINE SODIUM [Concomitant]
     Indication: PRODUCT USED FOR UNKNOWN INDICATION
     Dosage: 175 MCG OM
     Route: 065
  5. LEVOTHYROXINE SODIUM [Concomitant]
     Dosage: DOSE: 175 MCG OM
     Route: 065
  6. GLICLAZIDE [Concomitant]
     Indication: PRODUCT USED FOR UNKNOWN INDICATION
     Dosage: 80 MG, BID
     Route: 065
  7. GLICLAZIDE [Concomitant]
     Dosage: DOSE: 80 MG BD
     Route: 065
  8. METFORMIN [Concomitant]
     Indication: PRODUCT USED FOR UNKNOWN INDICATION
     Dosage: 850 MG, TID
     Route: 065
  9. METFORMIN [Concomitant]
     Dosage: DOSE: 850 MG TDS
     Route: 065
  10. RAMIPRIL [Concomitant]
     Indication: PRODUCT USED FOR UNKNOWN INDICATION
     Dosage: 2.5 MG, DAILY
     Route: 065
  11. RAMIPRIL [Concomitant]
     Dosage: DOSE: 2.5 MG OD
     Route: 065
  12. OXYBUTYNIN [Concomitant]
     Indication: PRODUCT USED FOR UNKNOWN INDICATION
     Dosage: DOSE: 10 MG OD
     Route: 065
     Dates: start: 200311
  13. CO-CODAMOL [Concomitant]
     Indication: PRODUCT USED FOR UNKNOWN INDICATION
     Dosage: 8/500, AS NEEDED
     Route: 065
  14. CO-CODAMOL [Concomitant]
     Dosage: DOSE: 8/500 PRN
     Route: 065
  15. SILDENAFIL [Concomitant]
     Indication: PRODUCT USED FOR UNKNOWN INDICATION
     Dosage: 50 MG, PRN
     Route: 065
  16. SILDENAFIL [Concomitant]
     Dosage: DOSE: 50 MG PRN
     Route: 065
  17. AMOXICILLIN [Concomitant]
     Indication: PRODUCT USED FOR UNKNOWN INDICATION
     Dosage: 250 MG, TID
     Route: 065
     Dates: start: 200311, end: 20031125
  18. AMOXICILLIN [Concomitant]
     Dosage: DOSE: 250 MG TDS
     Route: 065
     Dates: start: 200311, end: 20031125
  19. DOXYCYCLINE [Concomitant]
     Indication: PRODUCT USED FOR UNKNOWN INDICATION
     Dosage: 100 MG, DAILY
     Route: 065
     Dates: start: 200311, end: 20031205
  20. DOXYCYCLINE [Concomitant]
     Dosage: DOSE: 100 MG OD
     Route: 065
     Dates: start: 200311, end: 20031205

REACTIONS (2)
  - Jaundice [Recovering/Resolving]
  - Liver function test abnormal [Recovering/Resolving]
